FAERS Safety Report 5267637-1 (Version None)
Quarter: 2007Q1

REPORT INFORMATION
  Report Type: 
  Country: None (occurrence: None)
  Receive Date: 20070316
  Receipt Date: 20070305
  Transmission Date: 20070707
  Serious: Yes (Other)
  Sender: FDA-Public Use
  Company Number: JP-BRISTOL-MYERS SQUIBB COMPANY-13700950

PATIENT
  Age: 32 Year
  Sex: Male

DRUGS (5)
  1. LASTET [Suspect]
     Indication: TESTIS CANCER
  2. BLEOMYCIN [Suspect]
     Indication: TESTIS CANCER
  3. CARBOPLATIN [Suspect]
     Indication: TESTIS CANCER
  4. IFOSFAMIDE [Suspect]
     Indication: TESTIS CANCER
  5. RANDA [Suspect]
     Indication: TESTIS CANCER

REACTIONS (1)
  - AZOOSPERMIA [None]
